FAERS Safety Report 8008283-6 (Version None)
Quarter: 2011Q4

REPORT INFORMATION
  Report Type: 
  Country: None (occurrence: None)
  Receive Date: 20111227
  Receipt Date: 20111221
  Transmission Date: 20120403
  Serious: Yes (Other)
  Sender: FDA-Public Use
  Company Number: MY-ROCHE-1022511

PATIENT
  Sex: Female
  Weight: 66 kg

DRUGS (7)
  1. PRAZOSIN HCL [Concomitant]
     Indication: HYPERTENSION
     Route: 048
     Dates: start: 20070101
  2. ENALAPRIL MALEATE [Concomitant]
     Indication: HYPERTENSION
     Route: 048
     Dates: start: 20070101
  3. ATENOLOL [Concomitant]
     Indication: HYPERTENSION
     Route: 048
     Dates: start: 20070101
  4. EPREX [Concomitant]
     Dates: start: 20111201
  5. LOVASTATIN [Concomitant]
     Indication: BLOOD CHOLESTEROL
     Route: 048
     Dates: start: 20080101
  6. MIRCERA [Suspect]
     Indication: NEPHROGENIC ANAEMIA
     Route: 058
     Dates: start: 20110701, end: 20111101
  7. AMLODIPINE [Concomitant]
     Route: 048
     Dates: start: 20070101

REACTIONS (1)
  - HAEMOGLOBIN DECREASED [None]
